FAERS Safety Report 7671762-5 (Version None)
Quarter: 2011Q3

REPORT INFORMATION
  Report Type: 
  Country: None (occurrence: None)
  Receive Date: 20110809
  Receipt Date: 20110729
  Transmission Date: 20111222
  Serious: Yes (Life-Threatening, Hospitalization, Other)
  Sender: FDA-Public Use
  Company Number: JP-ROCHE-685710

PATIENT
  Sex: Male
  Weight: 78 kg

DRUGS (6)
  1. LEUCOVORIN CALCIUM [Suspect]
     Indication: COLON CANCER
     Dosage: ADMINISTERED FOR TWO WEEKS EVERY THREE WEEKS
     Route: 041
     Dates: start: 20080310
  2. OXALIPLATIN [Suspect]
     Route: 041
     Dates: start: 20080310, end: 20100203
  3. AVASTIN [Suspect]
     Indication: COLON CANCER
     Route: 041
     Dates: start: 20090203, end: 20100203
  4. OXALIPLATIN [Suspect]
     Indication: COLON CANCER
     Route: 041
  5. ISOVORIN [Concomitant]
     Route: 041
     Dates: start: 20090203, end: 20100201
  6. FLUOROURACIL [Suspect]
     Indication: COLON CANCER
     Route: 041
     Dates: start: 20080310, end: 20100201

REACTIONS (5)
  - CHILLS [None]
  - THROMBOCYTOPENIA [None]
  - DISSEMINATED INTRAVASCULAR COAGULATION [None]
  - HAEMORRHAGE SUBCUTANEOUS [None]
  - RENAL FAILURE ACUTE [None]
